FAERS Safety Report 14907590 (Version 1)
Quarter: 2018Q2

REPORT INFORMATION
  Report Type: Spontaneous
  Country: US (occurrence: US)
  Receive Date: 20180428
  Receipt Date: 20180428
  Transmission Date: 20180711
  Serious: Yes (Disabling)
  Sender: FDA-Public Use
  Company Number: None

PATIENT
  Age: 40 Year
  Sex: Female
  Weight: 99.79 kg

DRUGS (13)
  1. XANAX [Concomitant]
     Active Substance: ALPRAZOLAM
  2. VITAMIN D3 [Concomitant]
     Active Substance: CHOLECALCIFEROL
  3. RANITIDINE. [Concomitant]
     Active Substance: RANITIDINE
  4. PROZAC [Concomitant]
     Active Substance: FLUOXETINE HYDROCHLORIDE
  5. SINGULAIR [Concomitant]
     Active Substance: MONTELUKAST SODIUM
  6. RELPAX [Concomitant]
     Active Substance: ELETRIPTAN HYDROBROMIDE
  7. AMITIZO [Concomitant]
  8. SUCRALFATE. [Concomitant]
     Active Substance: SUCRALFATE
  9. TROKENDI [Concomitant]
     Active Substance: TOPIRAMATE
  10. PROAIR HFA [Concomitant]
     Active Substance: ALBUTEROL SULFATE
  11. MIRENA [Suspect]
     Active Substance: LEVONORGESTREL
  12. BOTOX [Concomitant]
     Active Substance: ONABOTULINUMTOXINA
  13. SIMVASTATIN. [Concomitant]
     Active Substance: SIMVASTATIN

REACTIONS (3)
  - Liver disorder [None]
  - Migraine [None]
  - Renal disorder [None]
